FAERS Safety Report 12852054 (Version 4)
Quarter: 2017Q1

REPORT INFORMATION
  Report Type: Spontaneous
  Country: FR (occurrence: FR)
  Receive Date: 20161017
  Receipt Date: 20170104
  Transmission Date: 20170428
  Serious: Yes (Hospitalization)
  Sender: FDA-Public Use
  Company Number: FR-CELGENEUS-FRA-2016102565

PATIENT
  Age: 77 Year
  Sex: Female
  Weight: 77 kg

DRUGS (40)
  1. REVLIMID [Suspect]
     Active Substance: LENALIDOMIDE
     Dosage: 25MG
     Route: 048
     Dates: start: 20151210, end: 20160623
  2. BACTRIM [Concomitant]
     Active Substance: SULFAMETHOXAZOLE\TRIMETHOPRIM
     Indication: INFECTION PROPHYLAXIS
     Dosage: 800/160MG
     Route: 048
     Dates: start: 20151112
  3. STERCULIA URENS GUM [Concomitant]
     Indication: CONSTIPATION
     Dosage: NOT PROVIDED
     Route: 054
     Dates: start: 20151201
  4. STILNOX [Concomitant]
     Active Substance: ZOLPIDEM TARTRATE
     Indication: INSOMNIA
     Dosage: 10MG
     Route: 048
     Dates: start: 20160107
  5. ALPRAZOLAM. [Concomitant]
     Active Substance: ALPRAZOLAM
     Indication: ANXIETY
     Dosage: 0.5MG
     Route: 048
  6. OXYCODONE [Concomitant]
     Active Substance: OXYCODONE
     Dosage: 20MG
     Route: 048
  7. ORACILLINE [Concomitant]
     Active Substance: PENICILLIN V
     Route: 048
  8. ALLOPURINOL. [Concomitant]
     Active Substance: ALLOPURINOL
     Indication: HYPERURICAEMIA
     Dosage: 500MG
     Route: 048
     Dates: start: 20151012
  9. POTASSIUM CHLORIDE. [Concomitant]
     Active Substance: POTASSIUM CHLORIDE
     Indication: PRODUCT USED FOR UNKNOWN INDICATION
     Route: 065
  10. ALLOPURINOL. [Concomitant]
     Active Substance: ALLOPURINOL
     Dosage: 200MG
     Route: 048
     Dates: start: 20151112
  11. UVEDOSE [Concomitant]
     Active Substance: CHOLECALCIFEROL
     Indication: VITAMIN D DEFICIENCY
     Dosage: 100000IU
     Route: 048
     Dates: start: 201603
  12. PLAVIX [Concomitant]
     Active Substance: CLOPIDOGREL BISULFATE
     Indication: ARTHRALGIA
     Dosage: 75MG
     Route: 048
     Dates: start: 20151012, end: 20160915
  13. VALACICLOVIR HYDROCHLORIDE [Concomitant]
     Active Substance: VALACYCLOVIR HYDROCHLORIDE
     Indication: PRODUCT USED FOR UNKNOWN INDICATION
     Route: 065
  14. DEXAMETHASONE. [Suspect]
     Active Substance: DEXAMETHASONE
     Indication: PLASMA CELL MYELOMA
     Dosage: 40MG
     Route: 048
     Dates: start: 20151112, end: 20160817
  15. DEXAMETHASONE. [Suspect]
     Active Substance: DEXAMETHASONE
     Dosage: 40MG
     Route: 048
     Dates: start: 20160928, end: 20161018
  16. OXYCODONE [Concomitant]
     Active Substance: OXYCODONE
     Dosage: 15MG
     Route: 048
     Dates: start: 20151011
  17. CALCIUM FOLINATE [Concomitant]
     Active Substance: LEUCOVORIN CALCIUM
     Indication: HAEMATOTOXICITY
     Dosage: 25MG
     Route: 048
     Dates: start: 20151112
  18. CALCIUM FOLINATE [Concomitant]
     Active Substance: LEUCOVORIN CALCIUM
     Indication: PROPHYLAXIS
  19. ZOMETA [Concomitant]
     Active Substance: ZOLEDRONIC ACID
     Indication: OSTEOPOROSIS
     Dosage: 4MG
     Route: 041
     Dates: start: 20151113
  20. INEGY [Concomitant]
     Active Substance: EZETIMIBE\SIMVASTATIN
     Indication: PRODUCT USED FOR UNKNOWN INDICATION
     Route: 065
  21. REVLIMID [Suspect]
     Active Substance: LENALIDOMIDE
     Indication: PLASMA CELL MYELOMA
     Dosage: 25MG
     Route: 048
     Dates: start: 20151112, end: 20151202
  22. OXYCODONE [Concomitant]
     Active Substance: OXYCODONE
     Dosage: 5MG
     Route: 048
     Dates: start: 20151011
  23. OXYCODONE [Concomitant]
     Active Substance: OXYCODONE
     Dosage: 1 TAB
     Route: 048
  24. ALLOPURINOL. [Concomitant]
     Active Substance: ALLOPURINOL
     Dosage: 300MG
     Route: 048
     Dates: start: 20151116
  25. VALACICLOVIR [Concomitant]
     Active Substance: VALACYCLOVIR HYDROCHLORIDE
     Indication: INFECTION PROPHYLAXIS
     Dosage: 1000MG
     Route: 048
     Dates: start: 20151112
  26. VALACICLOVIR [Concomitant]
     Active Substance: VALACYCLOVIR HYDROCHLORIDE
     Dosage: 500MG
     Route: 048
  27. MACROGOL [Concomitant]
     Active Substance: POLYETHYLENE GLYCOLS
     Indication: CONSTIPATION
     Dosage: 6
     Route: 048
     Dates: start: 20151201
  28. DOLIPRANE [Concomitant]
     Active Substance: ACETAMINOPHEN
     Dosage: 2000MG
     Route: 048
  29. OMEPRAZOLE. [Concomitant]
     Active Substance: OMEPRAZOLE
     Indication: GASTRITIS
     Dosage: 20MG
     Route: 048
     Dates: start: 20160713
  30. PARACETAMOL [Concomitant]
     Active Substance: ACETAMINOPHEN
     Indication: PRODUCT USED FOR UNKNOWN INDICATION
     Route: 065
  31. OXYCODONE HYDROCHLORIDE. [Concomitant]
     Active Substance: OXYCODONE HYDROCHLORIDE
     Indication: PRODUCT USED FOR UNKNOWN INDICATION
     Route: 065
  32. REVLIMID [Suspect]
     Active Substance: LENALIDOMIDE
     Dosage: 25 MILLIGRAM
     Route: 048
     Dates: start: 20160928, end: 20161018
  33. OXYCODONE [Concomitant]
     Active Substance: OXYCODONE
     Indication: BACK PAIN
     Dosage: 10MG
     Route: 048
     Dates: start: 20151011
  34. ORACILLINE [Concomitant]
     Active Substance: PENICILLIN V
     Indication: INFECTION PROPHYLAXIS
     Dosage: 2IU
     Route: 048
     Dates: start: 20151112
  35. ALLOPURINOL. [Concomitant]
     Active Substance: ALLOPURINOL
     Dosage: 300MG
     Route: 048
  36. DOLIPRANE [Concomitant]
     Active Substance: ACETAMINOPHEN
     Indication: BACK PAIN
     Dosage: 1500MG
     Route: 048
     Dates: start: 20151012
  37. DOLIPRANE [Concomitant]
     Active Substance: ACETAMINOPHEN
     Dosage: 1500MG
     Route: 048
  38. GLYCEROL [Concomitant]
     Active Substance: GLYCERIN
     Indication: CONSTIPATION
     Dosage: NOT PROVIDED
     Route: 054
     Dates: start: 20151201
  39. PLAVIX [Concomitant]
     Active Substance: CLOPIDOGREL BISULFATE
     Dosage: 75MG
     Route: 048
     Dates: start: 20160916
  40. METFORMIN HYDROCHLORIDE. [Concomitant]
     Active Substance: METFORMIN HYDROCHLORIDE
     Indication: HYPERGLYCAEMIA
     Dosage: 500MG
     Route: 048
     Dates: start: 20151012, end: 20160926

REACTIONS (3)
  - Osteoarthritis [Recovered/Resolved]
  - Pain in extremity [Recovered/Resolved]
  - Fatigue [Not Recovered/Not Resolved]

NARRATIVE: CASE EVENT DATE: 20160915
